FAERS Safety Report 6640174-5 (Version None)
Quarter: 2010Q1

REPORT INFORMATION
  Report Type: 
  Country: None (occurrence: None)
  Receive Date: 20100302
  Receipt Date: 20091214
  Transmission Date: 20100710
  Serious: No
  Sender: FDA-Public Use
  Company Number: 2009284995

PATIENT
  Age: 75 Year
  Sex: Male
  Weight: 63.5 kg

DRUGS (2)
  1. TOVIAZ [Suspect]
     Indication: BENIGN PROSTATIC HYPERPLASIA
     Dosage: 4 MG, 1X/DAY, ORAL
     Route: 048
     Dates: start: 20091001
  2. TOVIAZ [Suspect]
     Indication: HYPERTONIC BLADDER
     Dosage: 4 MG, 1X/DAY, ORAL
     Route: 048
     Dates: start: 20091001

REACTIONS (3)
  - DRY EYE [None]
  - EYE IRRITATION [None]
  - OCULAR HYPERAEMIA [None]
